FAERS Safety Report 8702395 (Version 2)
Quarter: 2012Q4

REPORT INFORMATION
  Report Type: 
  Country: US (occurrence: US)
  Receive Date: 20120803
  Receipt Date: 20120830
  Transmission Date: 20130627
  Serious: Yes (Other)
  Sender: FDA-Public Use
  Company Number: US-ELI_LILLY_AND_COMPANY-US201208000335

PATIENT
  Age: 64 Year
  Sex: Female
  Weight: 52.61 kg

DRUGS (2)
  1. EVISTA [Suspect]
     Dosage: 60 mg, qd
     Route: 048
     Dates: end: 20120803
  2. ZOCOR [Concomitant]
     Dosage: 20 mg, qd

REACTIONS (1)
  - Retinal vein occlusion [Recovered/Resolved]
